FAERS Safety Report 9885853 (Version 1)
Quarter: 2014Q1

REPORT INFORMATION
  Report Type: Spontaneous
  Country: GB (occurrence: None)
  Receive Date: 20140206
  Receipt Date: 20140206
  Transmission Date: 20141002
  Serious: Yes (Hospitalization)
  Sender: FDA-Public Use
  Company Number: AUR-APL-2014-00781

PATIENT
  Age: 83 Year
  Sex: Female
  Weight: 53 kg

DRUGS (3)
  1. AMLODIPINE (AMLODIPINE) [Suspect]
     Indication: PRODUCT USED FOR UNKNOWN INDICATION
     Route: 048
  2. BENDROFLUAZIDE [Concomitant]
  3. LIPITOR (ATORVASTATIN CALCIUM) [Concomitant]

REACTIONS (9)
  - Dizziness [None]
  - Insomnia [None]
  - Lethargy [None]
  - Feeling abnormal [None]
  - Syncope [None]
  - Blood pressure fluctuation [None]
  - Blood pressure decreased [None]
  - Skin discolouration [None]
  - Blood pressure increased [None]
